FAERS Safety Report 8219832-7 (Version None)
Quarter: 2012Q1

REPORT INFORMATION
  Report Type: 
  Country: None (occurrence: None)
  Receive Date: 20120319
  Receipt Date: 20120309
  Transmission Date: 20120608
  Serious: Yes (Other)
  Sender: FDA-Public Use
  Company Number: CHPA2011US017208

PATIENT
  Age: 3 Year
  Sex: Male
  Weight: 17.234 kg

DRUGS (1)
  1. ACETAMINOPHEN [Suspect]
     Dosage: ONE BOTTLE, ONCE
     Route: 048
     Dates: start: 20111130, end: 20111130

REACTIONS (3)
  - ACCIDENTAL DRUG INTAKE BY CHILD [None]
  - ACCIDENTAL OVERDOSE [None]
  - BLOOD TEST ABNORMAL [None]
